FAERS Safety Report 22196824 (Version 1)
Quarter: 2023Q2

REPORT INFORMATION
  Report Type: Spontaneous
  Country: US (occurrence: US)
  Receive Date: 20230411
  Receipt Date: 20230411
  Transmission Date: 20230721
  Serious: No
  Sender: FDA-Public Use
  Company Number: US-ABBVIE-4338237

PATIENT
  Sex: Female

DRUGS (1)
  1. RINVOQ [Suspect]
     Active Substance: UPADACITINIB
     Indication: Pancreatitis
     Route: 048

REACTIONS (2)
  - Pancreatitis [Recovering/Resolving]
  - Hepatic enzyme increased [Recovering/Resolving]
